FAERS Safety Report 6185312-6 (Version None)
Quarter: 2009Q2

REPORT INFORMATION
  Report Type: 
  Country: None (occurrence: None)
  Receive Date: 20090511
  Receipt Date: 20090505
  Transmission Date: 20091009
  Serious: Yes (Other)
  Sender: FDA-Public Use
  Company Number: BR-ROCHE-631433

PATIENT
  Sex: Female
  Weight: 2.9 kg

DRUGS (4)
  1. RIVOTRIL [Suspect]
     Indication: PANIC DISORDER
     Dosage: STRENGTH REPORTED: 2.5 MG/ML
     Route: 064
     Dates: start: 19950101, end: 19950101
  2. RIVOTRIL [Suspect]
     Dosage: DOSE INCREASED
     Route: 064
     Dates: start: 19950101
  3. RIVOTRIL [Suspect]
     Route: 064
     Dates: end: 20090113
  4. RIVOTRIL [Suspect]
     Dosage: BATCH NO: RJ0401
     Route: 064
     Dates: start: 20090114

REACTIONS (1)
  - ACUTE MYELOID LEUKAEMIA [None]
